FAERS Safety Report 17448687 (Version 1)
Quarter: 2020Q1

REPORT INFORMATION
  Report Type: Spontaneous
  Country: US (occurrence: US)
  Receive Date: 20200224
  Receipt Date: 20200224
  Transmission Date: 20200409
  Serious: Yes (Other)
  Sender: FDA-Public Use
  Company Number: US-ALEXION PHARMACEUTICALS INC.-A202002285

PATIENT
  Sex: Male
  Weight: 24 kg

DRUGS (1)
  1. ULTOMIRIS [Suspect]
     Active Substance: RAVULIZUMAB-CWVZ
     Indication: ATYPICAL HAEMOLYTIC URAEMIC SYNDROME
     Dosage: 2100 MG, EVERY 8 WEEKS
     Route: 065

REACTIONS (4)
  - Inflammatory bowel disease [Unknown]
  - Blood lactate dehydrogenase increased [Not Recovered/Not Resolved]
  - Cystinosis [Unknown]
  - Complement factor increased [Not Recovered/Not Resolved]
